FAERS Safety Report 10510963 (Version 1)
Quarter: 2014Q4

REPORT INFORMATION
  Report Type: Report from Study
  Country: TN (occurrence: TN)
  Receive Date: 20141010
  Receipt Date: 20141010
  Transmission Date: 20150528
  Serious: Yes (Death)
  Sender: FDA-Public Use
  Company Number: TN-SA-2014SA137158

PATIENT
  Age: 77 Year
  Sex: Male

DRUGS (4)
  1. ASPEGIC [Concomitant]
     Active Substance: ASPIRIN DL-LYSINE
     Route: 048
     Dates: start: 20131202, end: 201404
  2. ISOPHANE INSULIN [Concomitant]
     Active Substance: INSULIN NOS
     Route: 058
     Dates: start: 20131202, end: 201404
  3. PLAVIX [Suspect]
     Active Substance: CLOPIDOGREL BISULFATE
     Indication: ANGINA UNSTABLE
     Dosage: DOSE: 75
     Route: 048
     Dates: start: 20131202, end: 201404
  4. OMEPRAZOLE. [Concomitant]
     Active Substance: OMEPRAZOLE
     Route: 048
     Dates: start: 20131202, end: 201404

REACTIONS (1)
  - Gastrointestinal carcinoma [Fatal]

NARRATIVE: CASE EVENT DATE: 201404
